FAERS Safety Report 8572254-1 (Version None)
Quarter: 2012Q3

REPORT INFORMATION
  Report Type: 
  Country: None (occurrence: None)
  Receive Date: 20120806
  Receipt Date: 20120731
  Transmission Date: 20120928
  Serious: Yes (Death, Life-Threatening, Hospitalization)
  Sender: FDA-Public Use
  Company Number: JP-PFIZER INC-2008081536

PATIENT
  Age: 87 Year
  Sex: Female
  Weight: 35.5 kg

DRUGS (14)
  1. SILDENAFIL CITRATE [Suspect]
     Dosage: 60 MG, 3X/DAY
     Route: 048
     Dates: start: 20080610
  2. BERAPROST [Suspect]
     Indication: PULMONARY HYPERTENSION
     Dosage: 120 UG, 3X/DAY
     Route: 048
     Dates: start: 20080602
  3. TORSEMIDE [Concomitant]
     Route: 048
     Dates: start: 20080906
  4. BUP-4 [Concomitant]
     Route: 048
     Dates: start: 20061108
  5. GASMOTIN [Concomitant]
     Route: 048
     Dates: start: 20080905
  6. FLOLAN [Concomitant]
     Dosage: UNK
     Route: 042
     Dates: start: 20080825
  7. TRACLEER [Suspect]
     Dosage: 62.5 MG, 2X/DAY
     Route: 048
     Dates: start: 20070726
  8. NORVASC [Concomitant]
     Indication: CONCOMITANT DISEASE PROGRESSION
     Dosage: UNK
     Route: 048
     Dates: end: 20080826
  9. LANSOPRAZOLE [Concomitant]
     Route: 048
     Dates: start: 20070330
  10. FLOLAN [Concomitant]
     Indication: PULMONARY HYPERTENSION
     Dosage: UNK
     Route: 042
     Dates: end: 20080806
  11. HALCION [Concomitant]
     Route: 048
     Dates: start: 20070425
  12. ALDACTONE [Concomitant]
     Route: 048
     Dates: start: 20080908
  13. AMOBAN [Concomitant]
     Route: 048
     Dates: start: 20070330
  14. LASIX [Concomitant]
     Route: 048
     Dates: start: 20080901

REACTIONS (2)
  - RENAL IMPAIRMENT [None]
  - HEPATIC FUNCTION ABNORMAL [None]
